FAERS Safety Report 5804032-8 (Version None)
Quarter: 2008Q3

REPORT INFORMATION
  Report Type: 
  Country: None (occurrence: None)
  Receive Date: 20080707
  Receipt Date: 20080626
  Transmission Date: 20090109
  Serious: Yes (Other)
  Sender: FDA-Public Use
  Company Number: GXKR2008GB04276

PATIENT
  Age: 70 Year
  Sex: Female

DRUGS (8)
  1. ATENOLOL [Suspect]
     Indication: HYPERTENSION
     Dosage: 50 MG, QD,
  2. LACTIC ACID (LACTIC ACID) UNKNOWN [Suspect]
     Indication: HYPERTENSION
     Dosage: 1 DF, INTRADERMAL; 2 DF, INTRADERMAL; 1 DF, INTRADERMAL
     Route: 062
     Dates: start: 20060503, end: 20060503
  3. LACTIC ACID (LACTIC ACID) UNKNOWN [Suspect]
     Indication: HYPERTENSION
     Dosage: 1 DF, INTRADERMAL; 2 DF, INTRADERMAL; 1 DF, INTRADERMAL
     Route: 062
     Dates: start: 20060630, end: 20060630
  4. LACTIC ACID (LACTIC ACID) UNKNOWN [Suspect]
     Indication: HYPERTENSION
     Dosage: 1 DF, INTRADERMAL; 2 DF, INTRADERMAL; 1 DF, INTRADERMAL
     Route: 062
     Dates: start: 20071106, end: 20071106
  5. LACTIC ACID [Suspect]
     Dosage: 2 DF INTRADERMAL
     Route: 062
     Dates: start: 20061011, end: 20061011
  6. BENDROFLUAZIDE (BENDROFLUMETHIAZIDE) [Concomitant]
  7. AMLODIPINE BESYLATE [Concomitant]
  8. PERINDOPRIL ERBUMINE [Concomitant]

REACTIONS (7)
  - ABSCESS [None]
  - ERYTHEMA [None]
  - GRANULOMA SKIN [None]
  - INJECTION SITE NODULE [None]
  - KELOID SCAR [None]
  - SKIN NODULE [None]
  - WOUND SECRETION [None]
